FAERS Safety Report 12750302 (Version 1)
Quarter: 2016Q3

REPORT INFORMATION
  Report Type: Spontaneous
  Country: US (occurrence: US)
  Receive Date: 20160916
  Receipt Date: 20160916
  Transmission Date: 20161109
  Serious: Yes (Other)
  Sender: FDA-Public Use
  Company Number: US-PFIZER INC-2016387613

PATIENT
  Age: 52 Year
  Sex: Female
  Weight: 95.24 kg

DRUGS (2)
  1. IBRANCE [Suspect]
     Active Substance: PALBOCICLIB
     Dosage: 75 MG, UNK
     Route: 048
  2. IBRANCE [Suspect]
     Active Substance: PALBOCICLIB
     Indication: BREAST CANCER METASTATIC
     Dosage: 100 MG, CYCLIC (DAYS 1-21, Q28 DAYS)
     Route: 048
     Dates: start: 20160701

REACTIONS (6)
  - Muscle spasms [Unknown]
  - Abdominal pain upper [Unknown]
  - Confusional state [Unknown]
  - White blood cell disorder [Unknown]
  - Paraesthesia [Unknown]
  - Abdominal distension [Unknown]
